FAERS Safety Report 8090065-0 (Version None)
Quarter: 2012Q1

REPORT INFORMATION
  Report Type: 
  Country: None (occurrence: None)
  Receive Date: 20120129
  Receipt Date: 20111028
  Transmission Date: 20120608
  Serious: No
  Sender: FDA-Public Use
  Company Number: US-ABBOTT-11P-163-0869829-00

PATIENT
  Age: 31 Year
  Sex: Female

DRUGS (3)
  1. HUMIRA [Suspect]
     Indication: CROHN'S DISEASE
     Dates: start: 20100601, end: 20110801
  2. HUMIRA [Suspect]
     Dates: start: 20110801
  3. IMURAN [Concomitant]
     Indication: PRODUCT USED FOR UNKNOWN INDICATION

REACTIONS (8)
  - VULVOVAGINAL MYCOTIC INFECTION [None]
  - PAIN [None]
  - GASTROINTESTINAL PAIN [None]
  - VAGINAL INFECTION [None]
  - INJECTION SITE PAIN [None]
  - URTICARIA [None]
  - VESTIBULITIS [None]
  - DIARRHOEA [None]
